FAERS Safety Report 4340411-6 (Version None)
Quarter: 2004Q2

REPORT INFORMATION
  Report Type: 
  Country: None (occurrence: None)
  Receive Date: 20040414
  Receipt Date: 20040324
  Transmission Date: 20050107
  Serious: Yes (Hospitalization)
  Sender: FDA-Public Use
  Company Number: B0328672A

PATIENT
  Age: 59 Year
  Sex: Male
  Weight: 83.8247 kg

DRUGS (4)
  1. LAMICTAL [Suspect]
     Indication: EPILEPSY
     Dosage: 25 MG/ORAL
     Route: 048
     Dates: start: 19991029, end: 20010801
  2. FELODIPINE [Concomitant]
  3. DOXAZOSIN MESYLATE [Concomitant]
  4. ASPIRIN [Concomitant]

REACTIONS (3)
  - FATIGUE [None]
  - IMMUNODEFICIENCY COMMON VARIABLE [None]
  - LETHARGY [None]
